FAERS Safety Report 23776776 (Version 1)
Quarter: 2024Q2

REPORT INFORMATION
  Report Type: Spontaneous
  Country: GB (occurrence: GB)
  Receive Date: 20240424
  Receipt Date: 20240424
  Transmission Date: 20240716
  Serious: Yes (Other)
  Sender: FDA-Public Use
  Company Number: None

PATIENT
  Age: 41 Year
  Sex: Female
  Weight: 62 kg

DRUGS (1)
  1. ORLISTAT [Suspect]
     Active Substance: ORLISTAT
     Indication: Weight control
     Dosage: AS PRESCRIBED

REACTIONS (2)
  - Vulvovaginal candidiasis [Recovered/Resolved]
  - Urinary tract infection [Recovered/Resolved]

NARRATIVE: CASE EVENT DATE: 20230312
